FAERS Safety Report 6080145-3 (Version None)
Quarter: 2009Q1

REPORT INFORMATION
  Report Type: 
  Country: None (occurrence: None)
  Receive Date: 20090217
  Receipt Date: 20090204
  Transmission Date: 20090719
  Serious: Yes (Hospitalization)
  Sender: FDA-Public Use
  Company Number: SE-PFIZER INC-2009165781

PATIENT

DRUGS (9)
  1. DALACIN [Suspect]
     Indication: TOOTH INFECTION
     Dates: start: 20081014, end: 20081017
  2. METFORMIN [Suspect]
     Indication: DIABETES MELLITUS
     Dosage: UNK
     Route: 048
  3. LIPITOR [Concomitant]
  4. EZETROL [Concomitant]
  5. METHOTREXATE [Concomitant]
  6. FOLACIN [Concomitant]
  7. TENORMIN [Concomitant]
  8. GLIBENCLAMIDE [Concomitant]
  9. TROMBYL [Concomitant]

REACTIONS (3)
  - DIARRHOEA [None]
  - LACTIC ACIDOSIS [None]
  - VOMITING [None]
